FAERS Safety Report 6714393-3 (Version None)
Quarter: 2010Q2

REPORT INFORMATION
  Report Type: 
  Country: None (occurrence: None)
  Receive Date: 20100506
  Receipt Date: 20100422
  Transmission Date: 20101027
  Serious: Yes (Other)
  Sender: FDA-Public Use
  Company Number: CA-GENENTECH-298037

PATIENT
  Sex: Female

DRUGS (10)
  1. XOLAIR [Suspect]
     Indication: ASTHMA
     Dosage: 375 MG, Q2W
     Route: 058
     Dates: start: 20090403
  2. XOLAIR [Suspect]
     Dosage: 375 MG, Q2W
     Route: 058
     Dates: start: 20090928
  3. XOLAIR [Suspect]
     Dosage: 375 MG, Q2W
     Route: 058
     Dates: start: 20091112
  4. XOLAIR [Suspect]
     Dosage: 375 MG, Q2W
     Dates: start: 20091126
  5. XOLAIR [Suspect]
     Dosage: 375 MG, Q2W
     Dates: start: 20100204
  6. PREDNISONE [Concomitant]
     Indication: DRUG USE FOR UNKNOWN INDICATION
  7. CORTISONE [Concomitant]
     Indication: DRUG USE FOR UNKNOWN INDICATION
  8. VENTOLIN [Concomitant]
     Indication: DRUG USE FOR UNKNOWN INDICATION
  9. VENTOLIN [Concomitant]
  10. SYMBICORT [Concomitant]
     Indication: DRUG USE FOR UNKNOWN INDICATION

REACTIONS (8)
  - ASTHMA [None]
  - BLOOD PRESSURE DECREASED [None]
  - COUGH [None]
  - HYPERSENSITIVITY [None]
  - INFLUENZA [None]
  - NASOPHARYNGITIS [None]
  - RHINORRHOEA [None]
  - WEIGHT DECREASED [None]
